FAERS Safety Report 8793673 (Version 1)
Quarter: 2012Q4

REPORT INFORMATION
  Report Type: 
  Country: US (occurrence: US)
  Receive Date: 20120917
  Receipt Date: 20120917
  Transmission Date: 20130627
  Serious: No
  Sender: FDA-Public Use
  Company Number: US-FOUGERA-2012FO001227

PATIENT
  Age: 73 Year
  Sex: Female
  Weight: 56.7 kg

DRUGS (9)
  1. IMIQUIMOD [Suspect]
     Indication: HYPERKERATOSIS
     Route: 061
     Dates: start: 201204
  2. IMIQUIMOD [Suspect]
     Indication: PRECANCEROUS SKIN LESION
     Route: 061
     Dates: start: 201204
  3. IMIQUIMOD [Suspect]
     Indication: HYPERKERATOSIS
     Route: 061
     Dates: end: 201205
  4. IMIQUIMOD [Suspect]
     Indication: PRECANCEROUS SKIN LESION
     Route: 061
     Dates: end: 201205
  5. NORVASC [Concomitant]
     Indication: HYPERTENSION
     Route: 048
  6. COREG [Concomitant]
     Indication: HYPERTENSION
     Route: 048
  7. LOTENSIN HCT [Concomitant]
     Indication: HYPERTENSION
     Route: 048
  8. LOTENSIN HCT [Concomitant]
     Indication: HYPERTENSION
     Route: 048
  9. CYMBALTA [Concomitant]
     Indication: PAIN

REACTIONS (5)
  - Off label use [Not Recovered/Not Resolved]
  - Wrong technique in drug usage process [Unknown]
  - Cheilitis [Recovered/Resolved]
  - Application site dryness [Recovered/Resolved]
  - Application site exfoliation [Recovered/Resolved]
